FAERS Safety Report 6711078-4 (Version None)
Quarter: 2010Q2

REPORT INFORMATION
  Report Type: 
  Country: None (occurrence: None)
  Receive Date: 20100505
  Receipt Date: 20090720
  Transmission Date: 20101027
  Serious: No
  Sender: FDA-Public Use
  Company Number: US-KINGPHARMUSA00001-K200900863

PATIENT
  Sex: Female

DRUGS (4)
  1. AVINZA [Suspect]
     Indication: BACK PAIN
     Dosage: 120 MG, QD
     Route: 048
     Dates: start: 20070101
  2. LEXAPRO [Concomitant]
     Indication: STRESS
     Dosage: UNK, QD
  3. LEXAPRO [Concomitant]
     Indication: ANXIETY
  4. CLONAZEPAM [Concomitant]
     Indication: MUSCLE SPASMS
     Dosage: UNK

REACTIONS (8)
  - ABDOMINAL DISCOMFORT [None]
  - ABDOMINAL PAIN UPPER [None]
  - DIARRHOEA [None]
  - FAECES DISCOLOURED [None]
  - MALAISE [None]
  - SOMNOLENCE [None]
  - VOMITING [None]
  - WITHDRAWAL SYNDROME [None]
